FAERS Safety Report 13765469 (Version 1)
Quarter: 2017Q3

REPORT INFORMATION
  Report Type: Spontaneous
  Country: AT (occurrence: AT)
  Receive Date: 20170718
  Receipt Date: 20170718
  Transmission Date: 20171127
  Serious: Yes (Hospitalization)
  Sender: FDA-Public Use
  Company Number: AT-TEVA-785632ISR

PATIENT
  Age: 75 Year
  Sex: Female

DRUGS (1)
  1. ENALAPRIL/HYDROCHLOROTHIAZIDE RATIOPHARM 20MG/12,5MG [Suspect]
     Active Substance: ENALAPRIL MALEATE\HYDROCHLOROTHIAZIDE
     Dates: start: 20161218, end: 20161218

REACTIONS (2)
  - Choking [Recovered/Resolved]
  - Hospitalisation [Recovered/Resolved]

NARRATIVE: CASE EVENT DATE: 20161218
